FAERS Safety Report 6199825-4 (Version None)
Quarter: 2009Q2

REPORT INFORMATION
  Report Type: 
  Country: None (occurrence: None)
  Receive Date: 20090519
  Receipt Date: 20090505
  Transmission Date: 20091009
  Serious: No
  Sender: FDA-Public Use
  Company Number: 090087

PATIENT
  Age: 64 Year
  Sex: Male
  Weight: 96.6162 kg

DRUGS (18)
  1. NULYTELY [Suspect]
     Indication: COLONOSCOPY
     Dosage: ~4L, 1X, PO
     Route: 048
     Dates: start: 20090309
  2. NEXIUM [Concomitant]
  3. LYRICA [Concomitant]
  4. NAMENDA [Concomitant]
  5. ^STELIVO^ [Concomitant]
  6. CYMBALTA [Concomitant]
  7. ARICEPT [Concomitant]
  8. FLOMAX [Concomitant]
  9. SANCURA [Concomitant]
  10. ZETIA [Concomitant]
  11. SINEMET CR [Concomitant]
  12. MENTANX [Concomitant]
  13. COUMADIN [Concomitant]
  14. ARIXTA [Concomitant]
  15. XANAX [Concomitant]
  16. CELEBREX [Concomitant]
  17. PROBIOTICS [Concomitant]
  18. METAMUCIL [Concomitant]

REACTIONS (8)
  - ASPIRATION [None]
  - CARDIAC FAILURE CONGESTIVE [None]
  - GASTRIC ULCER HAEMORRHAGE [None]
  - HYPERHIDROSIS [None]
  - IMPAIRED GASTRIC EMPTYING [None]
  - PNEUMONIA [None]
  - RECTAL HAEMORRHAGE [None]
  - VOMITING [None]
